FAERS Safety Report 7124269-8 (Version None)
Quarter: 2010Q4

REPORT INFORMATION
  Report Type: 
  Country: None (occurrence: None)
  Receive Date: 20101126
  Receipt Date: 20101115
  Transmission Date: 20110411
  Serious: Yes (Other)
  Sender: FDA-Public Use
  Company Number: PHEH2006US13310

PATIENT
  Sex: Male

DRUGS (3)
  1. ZOMETA [Suspect]
  2. WARFARIN [Concomitant]
  3. THALIDOMIDE [Concomitant]

REACTIONS (23)
  - ABSCESS DRAINAGE [None]
  - ANXIETY [None]
  - BONE DENSITY DECREASED [None]
  - BONE PAIN [None]
  - CENTRAL VENOUS CATHETERISATION [None]
  - GASTROINTESTINAL TUBE INSERTION [None]
  - INJURY [None]
  - INTERVERTEBRAL DISC DEGENERATION [None]
  - LUNG NEOPLASM [None]
  - METASTASES TO BONE [None]
  - MULTIPLE MYELOMA [None]
  - OSTEOARTHRITIS [None]
  - OSTEONECROSIS OF JAW [None]
  - PAIN [None]
  - PLEURAL EFFUSION [None]
  - PNEUMONIA [None]
  - PULMONARY OEDEMA [None]
  - SUBCUTANEOUS ABSCESS [None]
  - SWELLING FACE [None]
  - TOOTH EXTRACTION [None]
  - TOOTHACHE [None]
  - VISION BLURRED [None]
  - VISUAL ACUITY REDUCED [None]
